FAERS Safety Report 8062848-4 (Version None)
Quarter: 2012Q1

REPORT INFORMATION
  Report Type: 
  Country: None (occurrence: None)
  Receive Date: 20120111
  Receipt Date: 20120104
  Transmission Date: 20120608
  Serious: Yes (Other)
  Sender: FDA-Public Use
  Company Number: 2012030706

PATIENT
  Age: 60 Year
  Sex: Female
  Weight: 88.905 kg

DRUGS (13)
  1. AMBIEN [Concomitant]
  2. RANITIDINE HYDROCHLORIDE [Concomitant]
  3. OMEPRAZOLE [Concomitant]
  4. HIZENTRA [Suspect]
     Indication: IMMUNODEFICIENCY COMMON VARIABLE
     Dosage: 10 G 1X/WEEK, 50 ML - 4 SITES OVER 1 HOUR AND 17 MINUTES SUBCUTANEOUS
     Route: 058
  5. PROMETHAZINE [Concomitant]
  6. VESICARE [Concomitant]
  7. CODEINE SULFATE [Concomitant]
  8. SINGULAIR [Concomitant]
  9. FENOFIBRATE [Concomitant]
  10. METOCLOPRAMIDE [Concomitant]
  11. TRIAMTERENE HCTZ (DYAZIDE) [Concomitant]
  12. HIZENTRA [Suspect]
     Indication: IMMUNODEFICIENCY COMMON VARIABLE
  13. POLYETHYLENE GLYCOL [Concomitant]

REACTIONS (1)
  - RESPIRATORY TRACT INFECTION [None]
